FAERS Safety Report 20769575 (Version 1)
Quarter: 2022Q2

REPORT INFORMATION
  Report Type: Spontaneous
  Country: FR (occurrence: FR)
  Receive Date: 20220429
  Receipt Date: 20220429
  Transmission Date: 20220721
  Serious: Yes (Other)
  Sender: FDA-Public Use
  Company Number: FR-PFM-2022-03682

PATIENT
  Age: 43 Year
  Sex: Female

DRUGS (2)
  1. BRAFTOVI [Suspect]
     Active Substance: ENCORAFENIB
     Indication: Malignant melanoma
     Dosage: 4 DF, DAILY
     Route: 065
     Dates: start: 202112
  2. MEKTOVI [Suspect]
     Active Substance: BINIMETINIB
     Indication: Malignant melanoma
     Dosage: 2 DF, BID (2/DAY) IN THE MORNING AND IN THE EVENING
     Route: 065
     Dates: start: 202112

REACTIONS (3)
  - Retinal detachment [Unknown]
  - Second primary malignancy [Unknown]
  - Lymphoma [Unknown]

NARRATIVE: CASE EVENT DATE: 20211201
